FAERS Safety Report 4816730-3 (Version None)
Quarter: 2005Q4

REPORT INFORMATION
  Report Type: 
  Country: None (occurrence: None)
  Receive Date: 20051031
  Receipt Date: 20051031
  Transmission Date: 20060501
  Serious: Yes (Life-Threatening, Hospitalization)
  Sender: FDA-Public Use
  Company Number: None

PATIENT
  Age: 35 Year
  Sex: Male
  Weight: 65.2 kg

DRUGS (1)
  1. CLOZAPINE [Suspect]
     Indication: SCHIZOAFFECTIVE DISORDER
     Dosage: 400MG  BID PO
     Route: 048

REACTIONS (6)
  - BACK PAIN [None]
  - DYSPNOEA [None]
  - ESCHERICHIA BACTERAEMIA [None]
  - MALAISE [None]
  - NEUTROPENIA [None]
  - NEUTROPENIC SEPSIS [None]
